FAERS Safety Report 8431499-1 (Version None)
Quarter: 2012Q2

REPORT INFORMATION
  Report Type: 
  Country: None (occurrence: None)
  Receive Date: 20120604
  Receipt Date: 20120518
  Transmission Date: 20120825
  Serious: Yes (Other)
  Sender: FDA-Public Use
  Company Number: 2012P1012633

PATIENT
  Age: 43 Year
  Sex: Male
  Weight: 105.2345 kg

DRUGS (11)
  1. DIOVAN [Concomitant]
  2. SIMVASTATIN [Concomitant]
  3. LORTAB [Concomitant]
  4. ACTOS [Concomitant]
  5. NOVOLOG [Concomitant]
  6. CYMBALTA [Concomitant]
  7. SERTRALINE HYDROCHLORIDE [Concomitant]
  8. SYNTHROID [Concomitant]
  9. FENTANYL-75 [Suspect]
     Indication: NEUROPATHY PERIPHERAL
     Dosage: 1 PATCH;Q48H;TDER
     Route: 062
     Dates: start: 20110401
  10. METFORMIN HCL [Concomitant]
  11. LEVEMIR [Concomitant]

REACTIONS (20)
  - DRUG WITHDRAWAL SYNDROME [None]
  - VOMITING [None]
  - TREMOR [None]
  - PRODUCT QUALITY ISSUE [None]
  - HYPERHIDROSIS [None]
  - APPENDICITIS [None]
  - NAUSEA [None]
  - DRUG SCREEN POSITIVE [None]
  - PANCREATITIS [None]
  - IRRITABLE BOWEL SYNDROME [None]
  - FEELING JITTERY [None]
  - DRUG INEFFECTIVE [None]
  - GLUCOSE URINE PRESENT [None]
  - ABDOMINAL PAIN [None]
  - INTESTINAL OBSTRUCTION [None]
  - INTESTINAL PERFORATION [None]
  - PAIN [None]
  - SYNCOPE [None]
  - URINE KETONE BODY PRESENT [None]
  - HYPERGLYCAEMIA [None]
